FAERS Safety Report 15450943 (Version 1)
Quarter: 2018Q4

REPORT INFORMATION
  Report Type: Spontaneous
  Country: US (occurrence: US)
  Receive Date: 20181001
  Receipt Date: 20181001
  Transmission Date: 20190204
  Serious: No
  Sender: FDA-Public Use
  Company Number: US-ASTRAZENECA-2018SF24430

PATIENT
  Age: 849 Month
  Sex: Male
  Weight: 78.5 kg

DRUGS (6)
  1. VENTOLIN [Concomitant]
     Active Substance: ALBUTEROL SULFATE
     Indication: DRUG THERAPY
     Route: 055
  2. MONTELUKAST [Concomitant]
     Active Substance: MONTELUKAST SODIUM
     Indication: ASTHMA
     Route: 048
  3. MONTELUKAST [Concomitant]
     Active Substance: MONTELUKAST SODIUM
     Indication: ASTHMA
     Route: 048
  4. SYMBICORT [Suspect]
     Active Substance: BUDESONIDE\FORMOTEROL FUMARATE DIHYDRATE
     Indication: MULTIPLE ALLERGIES
     Dosage: 80/4.5 MCG, TWO PUFFS TWICE DAILY
     Route: 055
  5. MONTELUKAST [Concomitant]
     Active Substance: MONTELUKAST SODIUM
     Indication: MULTIPLE ALLERGIES
     Route: 048
  6. SYMBICORT [Suspect]
     Active Substance: BUDESONIDE\FORMOTEROL FUMARATE DIHYDRATE
     Indication: MULTIPLE ALLERGIES
     Dosage: 80/4.5 MCG, TWO PUFFS TWICE DAILY
     Route: 055
     Dates: start: 20180921

REACTIONS (10)
  - Pulmonary congestion [Unknown]
  - Dyspnoea [Unknown]
  - Product use in unapproved indication [Unknown]
  - Tooth fracture [Unknown]
  - Product dose omission [Unknown]
  - Asthma [Unknown]
  - Tongue injury [Unknown]
  - Tooth disorder [Unknown]
  - Humidity intolerance [Unknown]
  - Off label use [Unknown]

NARRATIVE: CASE EVENT DATE: 201809
